FAERS Safety Report 9360639 (Version 2)
Quarter: 2013Q2

REPORT INFORMATION
  Report Type: Spontaneous
  Country: IN (occurrence: IN)
  Receive Date: 20130621
  Receipt Date: 20130626
  Transmission Date: 20140414
  Serious: Yes (Death, Other)
  Sender: FDA-Public Use
  Company Number: IN-009507513-1306IND009379

PATIENT
  Age: 72 Year
  Sex: Male

DRUGS (2)
  1. JANUVIA [Suspect]
     Dosage: 100 MG, QD
     Route: 048
     Dates: end: 20130611
  2. HUMALOG MIX 50 [Concomitant]
     Dosage: 12 UNITS IN THE MORNING AND NIGHT 22 UNITS

REACTIONS (4)
  - Renal cell carcinoma [Fatal]
  - Renal surgery [Unknown]
  - Nephrectomy [Unknown]
  - Local swelling [Unknown]
